FAERS Safety Report 13111552 (Version 2)
Quarter: 2017Q2

REPORT INFORMATION
  Report Type: Spontaneous
  Country: US (occurrence: US)
  Receive Date: 20170112
  Receipt Date: 20170517
  Transmission Date: 20170830
  Serious: Yes (Other)
  Sender: FDA-Public Use
  Company Number: US-TEVA-728380USA

PATIENT
  Sex: Male
  Weight: 75 kg

DRUGS (3)
  1. BUDESONIDE. [Suspect]
     Active Substance: BUDESONIDE
     Indication: CHRONIC OBSTRUCTIVE PULMONARY DISEASE
     Dosage: 0.25 MG/2 ML; DAILY
     Route: 055
  2. PERFOROMIST [Suspect]
     Active Substance: FORMOTEROL FUMARATE DIHYDRATE
     Route: 055
  3. BUDESONIDE. [Suspect]
     Active Substance: BUDESONIDE
     Indication: ASTHMA

REACTIONS (5)
  - Pharyngeal disorder [Unknown]
  - Dyspnoea [Unknown]
  - Lichen planus [Not Recovered/Not Resolved]
  - Wrong technique in product usage process [Unknown]
  - Oesophageal disorder [Unknown]
